FAERS Safety Report 20161280 (Version 4)
Quarter: 2022Q3

REPORT INFORMATION
  Report Type: Spontaneous
  Country: ES (occurrence: ES)
  Receive Date: 20211208
  Receipt Date: 20220707
  Transmission Date: 20221027
  Serious: Yes (Life-Threatening, Hospitalization, Disabling, Other)
  Sender: FDA-Public Use
  Company Number: ES-TEVA-2021-ES-1967611

PATIENT
  Age: 57 Year
  Sex: Female

DRUGS (8)
  1. FENTANYL [Suspect]
     Active Substance: FENTANYL
     Indication: Pain in extremity
     Dosage: 120 MILLIGRAM
     Route: 003
  2. TAPENTADOL [Suspect]
     Active Substance: TAPENTADOL
     Indication: Pain in extremity
     Dosage: UNK
     Route: 065
  3. ABSTRAL [Suspect]
     Active Substance: FENTANYL CITRATE
     Indication: Neuralgia
     Dosage: 200 MICROGRAM (1 COMPRESSED LOZENGE BUCCAL EVERY 1-2 HOURS WITHOUT NIGHT REST)
     Route: 002
  4. ABSTRAL [Suspect]
     Active Substance: FENTANYL CITRATE
     Dosage: 2400 MICROGRAM DAILY; 1 COMPRESSED LOZENGE BUCCAL EVERY 1- 2 HOURS WITHOUT NIGHT REST
     Route: 002
  5. FENTANYL [Suspect]
     Active Substance: FENTANYL
     Indication: Pain
     Dosage: 2400 MICROGRAM DAILY; 1 COMPRESSED LOZENGE BUCCAL EVERY 1-2 HOURS WITHOUT NIGHT REST
     Route: 002
  6. FENTANYL [Suspect]
     Active Substance: FENTANYL
     Indication: Neuralgia
     Dosage: 1 DOSAGE FORM EVERY HOUR
     Route: 002
  7. RIVOTRIL [Suspect]
     Active Substance: CLONAZEPAM
     Indication: Pain in extremity
     Dosage: 0.5 MILLIGRAM, Q6H
     Route: 048
  8. TRAMADOL HYDROCHLORIDE [Suspect]
     Active Substance: TRAMADOL HYDROCHLORIDE
     Indication: Pain in extremity
     Dosage: UNK, Q6H (1 PULSE EVERY 6 HOURS)
     Route: 048

REACTIONS (22)
  - Amnesia [Not Recovered/Not Resolved]
  - Near death experience [Recovering/Resolving]
  - Drug dependence [Recovering/Resolving]
  - Hallucination, visual [Recovered/Resolved]
  - Cerebrovascular accident [Recovered/Resolved]
  - Helplessness [Recovered/Resolved]
  - Renal pain [Unknown]
  - Contraindicated product administered [Unknown]
  - Hyperaesthesia [Not Recovered/Not Resolved]
  - Depression [Recovered/Resolved]
  - Cognitive disorder [Recovered/Resolved]
  - Suicidal ideation [Recovered/Resolved]
  - Withdrawal syndrome [Recovered/Resolved]
  - Drug use disorder [Recovering/Resolving]
  - Confusional state [Recovered/Resolved]
  - Allodynia [Recovered/Resolved]
  - Social avoidant behaviour [Recovered/Resolved]
  - Loss of personal independence in daily activities [Recovered/Resolved]
  - Toxicity to various agents [Recovered/Resolved]
  - Soliloquy [Recovered/Resolved]
  - Incoherent [Unknown]
  - Product use in unapproved indication [Recovered/Resolved]

NARRATIVE: CASE EVENT DATE: 20090101
